FAERS Safety Report 5971639-7 (Version None)
Quarter: 2008Q4

REPORT INFORMATION
  Report Type: 
  Country: None (occurrence: None)
  Receive Date: 20081201
  Receipt Date: 20081119
  Transmission Date: 20090506
  Serious: Yes (Hospitalization)
  Sender: FDA-Public Use
  Company Number: JP-BAYER-200812331BYL

PATIENT
  Age: 40 Year
  Sex: Male
  Weight: 73 kg

DRUGS (7)
  1. AVELOX [Suspect]
     Indication: NASAL SEPTUM DEVIATION
     Dosage: TOTAL DAILY DOSE: 400 MG  UNIT DOSE: 400 MG
     Route: 048
     Dates: start: 20080823, end: 20080827
  2. GENINAX [Suspect]
     Indication: NASAL SEPTUM DEVIATION
     Dosage: TOTAL DAILY DOSE: 400 MG  UNIT DOSE: 400 MG
     Route: 048
     Dates: start: 20080829, end: 20080903
  3. LOXONIN [Concomitant]
     Indication: NASAL SEPTUM DEVIATION
     Dosage: TOTAL DAILY DOSE: 180 MG  UNIT DOSE: 60 MG
     Route: 048
     Dates: start: 20080823, end: 20080827
  4. SELBEX [Concomitant]
     Indication: NASAL SEPTUM DEVIATION
     Dosage: TOTAL DAILY DOSE: 150 MG  UNIT DOSE: 50 MG
     Route: 048
     Dates: start: 20080823, end: 20080827
  5. MUCODYNE [Concomitant]
     Indication: NASAL SEPTUM DEVIATION
     Dosage: TOTAL DAILY DOSE: 1500 MG  UNIT DOSE: 500 MG
     Route: 048
     Dates: start: 20080829, end: 20080903
  6. NEUZYM [Concomitant]
     Indication: NASAL SEPTUM DEVIATION
     Dosage: TOTAL DAILY DOSE: 270 MG  UNIT DOSE: 90 MG
     Route: 048
     Dates: start: 20080829, end: 20080903
  7. MUCOSTA [Concomitant]
     Indication: NASAL SEPTUM DEVIATION
     Dosage: TOTAL DAILY DOSE: 300 MG  UNIT DOSE: 100 MG
     Route: 048
     Dates: start: 20080829, end: 20080903

REACTIONS (3)
  - ERYTHEMA MULTIFORME [None]
  - EYELID OEDEMA [None]
  - RASH GENERALISED [None]
